FAERS Safety Report 5880292-2 (Version None)
Quarter: 2008Q3

REPORT INFORMATION
  Report Type: 
  Country: None (occurrence: None)
  Receive Date: 20080912
  Receipt Date: 20080908
  Transmission Date: 20090109
  Serious: Yes (Hospitalization)
  Sender: FDA-Public Use
  Company Number: PHEH2008US06019

PATIENT
  Sex: Female
  Weight: 197 kg

DRUGS (10)
  1. TEKTURNA [Suspect]
     Indication: HYPERTENSION
     Dosage: 150 MG, QD
     Dates: start: 20080314, end: 20080504
  2. GLYBURIDE [Concomitant]
     Dosage: 2.5 MG, QD
  3. CARTIA XT [Concomitant]
     Dosage: 360 MG, QD
  4. TORSEMIDE [Concomitant]
     Indication: OEDEMA
     Dosage: 20 MG, QD
  5. TORSEMIDE [Concomitant]
     Indication: HYPERTENSION
  6. GLUCOSAMINE SULFATE W/CHONDROITIN [Concomitant]
     Dosage: UNK, UNK
  7. MICARDIS [Concomitant]
     Indication: HYPERTENSION
     Dosage: 80 MG, QD
  8. CLONIDINE [Concomitant]
     Dosage: 1 MG, BID
  9. DARVOCET-N 100 [Concomitant]
     Indication: PAIN
     Dosage: UNK, PRN
  10. ALEVE [Concomitant]
     Dosage: UNK, ^RARE^

REACTIONS (7)
  - BLOOD CREATININE INCREASED [None]
  - BLOOD UREA INCREASED [None]
  - BRAIN NATRIURETIC PEPTIDE INCREASED [None]
  - CARDIAC FAILURE CONGESTIVE [None]
  - DYSPNOEA [None]
  - PALPITATIONS [None]
  - RENAL FAILURE ACUTE [None]
